FAERS Safety Report 7118184-3 (Version None)
Quarter: 2010Q4

REPORT INFORMATION
  Report Type: 
  Country: None (occurrence: None)
  Receive Date: 20101118
  Receipt Date: 20101118
  Transmission Date: 20110411
  Serious: Yes (Hospitalization)
  Sender: FDA-Public Use
  Company Number: None

PATIENT
  Age: 62 Year
  Sex: Female
  Weight: 72.5755 kg

DRUGS (1)
  1. SEVOFLURANE [Suspect]
     Indication: ANAESTHESIA PROCEDURE

REACTIONS (6)
  - BLOOD THYROID STIMULATING HORMONE INCREASED [None]
  - CHOLELITHIASIS [None]
  - CHOLESTATIC LIVER INJURY [None]
  - HEPATITIS CHOLESTATIC [None]
  - IMPAIRED WORK ABILITY [None]
  - SERUM FERRITIN INCREASED [None]
